FAERS Safety Report 14292688 (Version 1)
Quarter: 2017Q4

REPORT INFORMATION
  Report Type: Spontaneous
  Country: US (occurrence: US)
  Receive Date: 20171215
  Receipt Date: 20171215
  Transmission Date: 20180321
  Serious: No
  Sender: FDA-Public Use
  Company Number: US-PERRIGO-17US030154

PATIENT
  Age: 68 Year
  Sex: Female
  Weight: 78.5 kg

DRUGS (3)
  1. GUAIFENESIN. [Suspect]
     Active Substance: GUAIFENESIN
     Indication: COUGH
     Dosage: 600 MG, SINGLE
     Route: 048
     Dates: start: 20171119, end: 20171119
  2. GUAIFENESIN. [Suspect]
     Active Substance: GUAIFENESIN
     Dosage: 600 MG, TWICE
     Route: 048
     Dates: start: 20171120, end: 20171120
  3. FLUTICASONE. [Concomitant]
     Active Substance: FLUTICASONE
     Indication: PRODUCT USED FOR UNKNOWN INDICATION
     Dosage: UNK
     Route: 045

REACTIONS (1)
  - Expired product administered [Recovered/Resolved]

NARRATIVE: CASE EVENT DATE: 20171119
